FAERS Safety Report 19370364 (Version 1)
Quarter: 2021Q2

REPORT INFORMATION
  Report Type: Report from Study
  Country: DE (occurrence: DE)
  Receive Date: 20210603
  Receipt Date: 20210603
  Transmission Date: 20210717
  Serious: Yes (Hospitalization, Other)
  Sender: FDA-Public Use
  Company Number: DE-TAKEDA-2021TUS034691

PATIENT
  Age: 48 Year
  Sex: Male

DRUGS (10)
  1. TEDUGLUTIDE [Suspect]
     Active Substance: TEDUGLUTIDE
     Indication: SHORT-BOWEL SYNDROME
     Dosage: 3.700 MILLIGRAM(0.050MILLIGRAM/KILOGRAM),QD
     Route: 058
     Dates: start: 20150903, end: 20170316
  2. TEDUGLUTIDE [Suspect]
     Active Substance: TEDUGLUTIDE
     Dosage: 3.700MILLIGRAM,(0.050MILLIGRAM/KILLOGRAM),QD
     Route: 058
     Dates: start: 20170505
  3. DEXFOSFOSERINE. [Concomitant]
     Active Substance: DEXFOSFOSERINE
     Indication: VITAMIN B COMPLEX DEFICIENCY
     Dosage: 999 MILLIGRAM, QD
     Route: 048
     Dates: start: 20190618
  4. TEDUGLUTIDE [Suspect]
     Active Substance: TEDUGLUTIDE
     Dosage: 3.700MILLIGRAM,(0.050MILLIGRAM/KILLOGRAM),QD
     Route: 058
     Dates: start: 20170505
  5. TEDUGLUTIDE [Suspect]
     Active Substance: TEDUGLUTIDE
     Indication: SHORT-BOWEL SYNDROME
     Dosage: 3.700 MILLIGRAM(0.050MILLIGRAM/KILOGRAM),QD
     Route: 058
     Dates: start: 20150903, end: 20170316
  6. TEDUGLUTIDE [Suspect]
     Active Substance: TEDUGLUTIDE
     Dosage: 3.700MILLIGRAM,(0.050MILLIGRAM/KILLOGRAM),QD
     Route: 058
     Dates: start: 20170505
  7. TEDUGLUTIDE [Suspect]
     Active Substance: TEDUGLUTIDE
     Indication: SHORT-BOWEL SYNDROME
     Dosage: 3.700 MILLIGRAM(0.050MILLIGRAM/KILOGRAM),QD
     Route: 058
     Dates: start: 20150903, end: 20170316
  8. TEDUGLUTIDE [Suspect]
     Active Substance: TEDUGLUTIDE
     Indication: SHORT-BOWEL SYNDROME
     Dosage: 3.700 MILLIGRAM(0.050MILLIGRAM/KILOGRAM),QD
     Route: 058
     Dates: start: 20150903, end: 20170316
  9. TEDUGLUTIDE [Suspect]
     Active Substance: TEDUGLUTIDE
     Dosage: 3.700MILLIGRAM,(0.050MILLIGRAM/KILLOGRAM),QD
     Route: 058
     Dates: start: 20170505
  10. LEVOGLUTAMIDE [Concomitant]
     Active Substance: GLUTAMINE
     Indication: VITAMIN B COMPLEX DEFICIENCY
     Dosage: 999 MILLIGRAM
     Route: 048
     Dates: start: 20190618

REACTIONS (1)
  - Nephrolithiasis [Recovered/Resolved]

NARRATIVE: CASE EVENT DATE: 20210215
